FAERS Safety Report 9282832 (Version 1)
Quarter: 2013Q2

REPORT INFORMATION
  Report Type: Spontaneous
  Country: US (occurrence: US)
  Receive Date: 20130510
  Receipt Date: 20130510
  Transmission Date: 20140414
  Serious: Yes (Other)
  Sender: FDA-Public Use
  Company Number: PHHY2013US043929

PATIENT
  Age: 65 Year
  Sex: Male

DRUGS (3)
  1. MYCOPHENOLATE [Suspect]
     Indication: MYASTHENIA GRAVIS
     Dosage: UNK
  2. STEROIDS NOS [Concomitant]
     Indication: MYASTHENIA GRAVIS
     Route: 048
  3. MESTINON [Concomitant]
     Indication: MYASTHENIA GRAVIS

REACTIONS (8)
  - Hypogammaglobulinaemia [Unknown]
  - Histoplasmosis [Unknown]
  - Pulmonary mass [Unknown]
  - Dyspnoea [Unknown]
  - Cytomegalovirus colitis [Unknown]
  - Diarrhoea [Unknown]
  - Pneumococcal infection [Unknown]
  - Candida infection [Unknown]
